FAERS Safety Report 12679589 (Version 3)
Quarter: 2017Q1

REPORT INFORMATION
  Report Type: Spontaneous
  Country: US (occurrence: US)
  Receive Date: 20160824
  Receipt Date: 20170103
  Transmission Date: 20170428
  Serious: No
  Sender: FDA-Public Use
  Company Number: US-PFIZER INC-2016380318

PATIENT
  Age: 67 Year
  Sex: Female

DRUGS (10)
  1. TRAMADOL. [Concomitant]
     Active Substance: TRAMADOL
     Dosage: UNK
     Dates: start: 1999
  2. TRAZODONE [Concomitant]
     Active Substance: TRAZODONE HYDROCHLORIDE
     Dosage: UNK
     Dates: start: 1999
  3. CLONAZEPAM. [Concomitant]
     Active Substance: CLONAZEPAM
     Dosage: UNK
     Dates: start: 1999
  4. LIOTHYRONINE SODIUM. [Suspect]
     Active Substance: LIOTHYRONINE SODIUM
     Indication: THYROIDECTOMY
     Dosage: UNK
     Dates: start: 201607
  5. ARMOUR THYROID [Suspect]
     Active Substance: THYROID, PORCINE
     Indication: THYROIDECTOMY
     Dosage: 90 UG, 1X/DAY
     Dates: start: 201403
  6. CRESTOR [Concomitant]
     Active Substance: ROSUVASTATIN CALCIUM
     Dosage: UNK
     Dates: start: 1999
  7. LEVOTHYROXINE SODIUM STAT RX [Concomitant]
     Indication: HYPOTHYROIDISM
  8. KLONOPIN [Concomitant]
     Active Substance: CLONAZEPAM
     Dosage: UNK
     Dates: start: 1999
  9. EFFEXOR XR [Suspect]
     Active Substance: VENLAFAXINE HYDROCHLORIDE
     Indication: DEPRESSION
     Dosage: 150 MG, 2X/DAY
  10. LEVOTHYROXINE SODIUM STAT RX [Concomitant]
     Indication: AUTOIMMUNE THYROIDITIS
     Dosage: UNK (SEVERAL STRENGTHS LAST 125)

REACTIONS (1)
  - Alopecia [Not Recovered/Not Resolved]
